FAERS Safety Report 5360755-9 (Version None)
Quarter: 2007Q2

REPORT INFORMATION
  Report Type: 
  Country: None (occurrence: None)
  Receive Date: 20070618
  Receipt Date: 20070607
  Transmission Date: 20071010
  Serious: Yes (Hospitalization, Disabling, Other)
  Sender: FDA-Public Use
  Company Number: US-JNJFOC-20061203824

PATIENT
  Sex: Female
  Weight: 62.14 kg

DRUGS (12)
  1. LEVAQUIN [Suspect]
     Indication: BRONCHITIS
     Route: 048
  2. LEVAQUIN [Suspect]
     Indication: UPPER RESPIRATORY TRACT INFECTION
     Route: 048
  3. PREDNISONE TAB [Concomitant]
     Indication: TENDONITIS
  4. LODINE [Concomitant]
  5. ALDACTONE [Concomitant]
  6. HYDROCHLOROTHIAZIDE [Concomitant]
  7. ESTRADIOL [Concomitant]
  8. DARVOCET [Concomitant]
  9. ECOTRIN [Concomitant]
  10. NEXIUM [Concomitant]
  11. INDERAL [Concomitant]
  12. PHENERGAN HCL [Concomitant]

REACTIONS (2)
  - TENDON RUPTURE [None]
  - TENDONITIS [None]
